APPROVED DRUG PRODUCT: NEBIVOLOL HYDROCHLORIDE
Active Ingredient: NEBIVOLOL HYDROCHLORIDE
Strength: EQ 20MG BASE
Dosage Form/Route: TABLET;ORAL
Application: A209741 | Product #002
Applicant: APOTEX INC
Approved: Feb 27, 2024 | RLD: No | RS: No | Type: DISCN